FAERS Safety Report 16056969 (Version 1)
Quarter: 2019Q1

REPORT INFORMATION
  Report Type: Report from Study
  Country: US (occurrence: US)
  Receive Date: 20190311
  Receipt Date: 20190311
  Transmission Date: 20190418
  Serious: Yes (Other)
  Sender: FDA-Public Use
  Company Number: US-ALEXION PHARMACEUTICALS INC.-A201903481

PATIENT
  Age: 49 Year
  Sex: Male

DRUGS (2)
  1. SOLIRIS [Suspect]
     Active Substance: ECULIZUMAB
     Indication: PRODUCT USED FOR UNKNOWN INDICATION
     Dosage: UNK
     Route: 065
  2. WARFARIN [Concomitant]
     Active Substance: WARFARIN
     Indication: ANTICOAGULANT THERAPY
     Dosage: UNK
     Route: 065

REACTIONS (11)
  - Renal impairment [Unknown]
  - Infection [Unknown]
  - Fatigue [Unknown]
  - Postural orthostatic tachycardia syndrome [Unknown]
  - Headache [Unknown]
  - Anaemia [Unknown]
  - Impaired quality of life [Unknown]
  - Thrombocytopenia [Unknown]
  - Thrombosis [Unknown]
  - Atrial fibrillation [Unknown]
  - Transplant rejection [Unknown]
